FAERS Safety Report 8840720 (Version 2)
Quarter: 2015Q2

REPORT INFORMATION
  Report Type: Report from Study
  Country: US (occurrence: US)
  Receive Date: 20121015
  Receipt Date: 20150423
  Transmission Date: 20150821
  Serious: Yes (Death)
  Sender: FDA-Public Use
  Company Number: US-ROCHE-1122421

PATIENT
  Sex: Male
  Weight: 53 kg

DRUGS (8)
  1. SYNTHROID [Concomitant]
     Active Substance: LEVOTHYROXINE SODIUM
     Route: 065
  2. VASOPRESSIN. [Concomitant]
     Active Substance: VASOPRESSIN
  3. NUTROPIN AQ [Suspect]
     Active Substance: SOMATROPIN
     Indication: PITUITARY INFARCTION
     Route: 058
  4. HYDROCORTISONE. [Concomitant]
     Active Substance: HYDROCORTISONE
  5. THYROXINE [Concomitant]
     Active Substance: LEVOTHYROXINE
  6. PHENOBARBITAL. [Concomitant]
     Active Substance: PHENOBARBITAL
     Indication: SEIZURE
  7. NUTROPIN AQ [Suspect]
     Active Substance: SOMATROPIN
     Indication: HYPOPITUITARISM
  8. NUTROPIN AQ [Suspect]
     Active Substance: SOMATROPIN
     Indication: HYPOPITUITARISM
     Dosage: NIGHTLY
     Route: 058
     Dates: start: 20021025

REACTIONS (4)
  - Viral infection [Fatal]
  - Keratosis pilaris [Unknown]
  - Adrenocortical insufficiency acute [Fatal]
  - Obesity [Unknown]
